FAERS Safety Report 20266232 (Version 1)
Quarter: 2021Q4

REPORT INFORMATION
  Report Type: Spontaneous
  Country: US (occurrence: US)
  Receive Date: 20211231
  Receipt Date: 20211231
  Transmission Date: 20220303
  Serious: Yes (Hospitalization, Other)
  Sender: FDA-Public Use
  Company Number: US-BRISTOL-MYERS SQUIBB COMPANY-BMS-2021-141146

PATIENT
  Age: 23 Year
  Sex: Female

DRUGS (11)
  1. DIDANOSINE [Suspect]
     Active Substance: DIDANOSINE
     Indication: HIV infection
     Dosage: UNK
     Route: 065
  2. DIDANOSINE [Suspect]
     Active Substance: DIDANOSINE
     Dosage: UNK
     Route: 065
  3. STAVUDINE [Suspect]
     Active Substance: STAVUDINE
     Indication: HIV infection
     Dosage: UNK
     Route: 065
  4. ZIDOVUDINE [Suspect]
     Active Substance: ZIDOVUDINE
     Indication: HIV infection
     Dosage: UNK
     Route: 065
  5. LAMIVUDINE [Suspect]
     Active Substance: LAMIVUDINE
     Indication: HIV infection
     Dosage: UNK
     Route: 065
  6. NELFINAVIR [Suspect]
     Active Substance: NELFINAVIR
     Indication: HIV infection
     Dosage: UNK
     Route: 065
  7. RITONAVIR [Suspect]
     Active Substance: RITONAVIR
     Indication: HIV infection
     Dosage: UNK
     Route: 065
  8. NEVIRAPINE [Suspect]
     Active Substance: NEVIRAPINE
     Indication: HIV infection
     Dosage: UNK
     Route: 065
  9. AMPRENAVIR [Suspect]
     Active Substance: AMPRENAVIR
     Indication: HIV infection
     Dosage: UNK
     Route: 065
  10. LOPINAVIR [Suspect]
     Active Substance: LOPINAVIR
     Indication: HIV infection
     Dosage: UNK
     Route: 065
  11. ABACAVIR [Suspect]
     Active Substance: ABACAVIR
     Indication: HIV infection
     Dosage: UNK
     Route: 065

REACTIONS (2)
  - Pancreatitis relapsing [Unknown]
  - Gastrointestinal disorder [Unknown]
